FAERS Safety Report 5091088-6 (Version None)
Quarter: 2006Q3

REPORT INFORMATION
  Report Type: 
  Country: None (occurrence: None)
  Receive Date: 20060829
  Receipt Date: 20060817
  Transmission Date: 20061208
  Serious: Yes (Hospitalization)
  Sender: FDA-Public Use
  Company Number: US-KINGPHARMUSA00001-K200601063

PATIENT
  Age: 81 Year
  Sex: Male

DRUGS (3)
  1. ALTACE [Suspect]
     Route: 048
     Dates: start: 20060101
  2. SECTRAL [Suspect]
     Route: 048
  3. ARANESP [Suspect]
     Indication: ANAEMIA
     Route: 058

REACTIONS (6)
  - GENERAL PHYSICAL HEALTH DETERIORATION [None]
  - HYPERKALAEMIA [None]
  - MALAISE [None]
  - OSTEITIS [None]
  - OSTEONECROSIS [None]
  - PYREXIA [None]
